FAERS Safety Report 5383239-0 (Version None)
Quarter: 2007Q3

REPORT INFORMATION
  Report Type: 
  Country: None (occurrence: None)
  Receive Date: 20070710
  Receipt Date: 20070702
  Transmission Date: 20080115
  Serious: Yes (Hospitalization, Other)
  Sender: FDA-Public Use
  Company Number: US-PFIZER INC-2006126976

PATIENT
  Sex: Female
  Weight: 52.2 kg

DRUGS (4)
  1. CELEBREX [Suspect]
     Indication: ARTHRITIS
     Route: 048
     Dates: start: 19990101, end: 19991001
  2. VIOXX [Suspect]
     Indication: ARTHRITIS
     Route: 048
     Dates: start: 19990601, end: 20011231
  3. VIOXX [Suspect]
     Indication: RHEUMATOID ARTHRITIS
  4. VIOXX [Suspect]
     Indication: OSTEOARTHRITIS

REACTIONS (2)
  - DEPRESSION [None]
  - ISCHAEMIC STROKE [None]
